FAERS Safety Report 21781212 (Version 1)
Quarter: 2022Q4

REPORT INFORMATION
  Report Type: Spontaneous
  Country: RO (occurrence: RO)
  Receive Date: 20221227
  Receipt Date: 20221227
  Transmission Date: 20230113
  Serious: Yes (Hospitalization, Other)
  Sender: FDA-Public Use
  Company Number: RO-AUROBINDO-AUR-APL-2022-052553

PATIENT
  Age: 14 Month
  Sex: Female

DRUGS (12)
  1. MEROPENEM [Suspect]
     Active Substance: MEROPENEM
     Indication: Antibiotic therapy
     Dosage: 60 MILLIGRAM/KILOGRAM, ONCE A DAY
     Route: 065
  2. MEROPENEM [Suspect]
     Active Substance: MEROPENEM
     Indication: Splenic abscess
  3. CLINDAMYCIN [Suspect]
     Active Substance: CLINDAMYCIN
     Indication: Antibiotic therapy
     Dosage: 30 MILLIGRAM/KILOGRAM, ONCE A DAY
     Route: 065
  4. CLINDAMYCIN [Suspect]
     Active Substance: CLINDAMYCIN
     Indication: Splenic abscess
  5. VANCOMYCIN [Suspect]
     Active Substance: VANCOMYCIN
     Indication: Antibiotic therapy
     Dosage: 40 MILLIGRAM/KILOGRAM, ONCE A DAY
     Route: 065
  6. VANCOMYCIN [Suspect]
     Active Substance: VANCOMYCIN
     Indication: Splenic abscess
  7. VANCOMYCIN [Suspect]
     Active Substance: VANCOMYCIN
     Indication: Rash vesicular
  8. FLUCONAZOLE [Suspect]
     Active Substance: FLUCONAZOLE
     Indication: Antibiotic therapy
     Dosage: 6 MILLIGRAM/KILOGRAM, ONCE A DAY
     Route: 065
  9. FLUCONAZOLE [Suspect]
     Active Substance: FLUCONAZOLE
     Indication: Rash vesicular
  10. AMOXICILLIN\CLAVULANIC ACID [Concomitant]
     Active Substance: AMOXICILLIN\CLAVULANIC ACID
     Indication: Aphthous ulcer
     Dosage: UNK
     Route: 065
  11. BACITRACIN [Concomitant]
     Active Substance: BACITRACIN
     Indication: Aphthous ulcer
     Dosage: UNK
     Route: 065
  12. HYDROCORTISONE [Concomitant]
     Active Substance: HYDROCORTISONE
     Indication: Product used for unknown indication
     Dosage: UNK
     Route: 065

REACTIONS (7)
  - Drug ineffective [Unknown]
  - Dysbiosis [Unknown]
  - Superficial vein thrombosis [Unknown]
  - Infusion site thrombosis [Unknown]
  - Diarrhoea [Unknown]
  - Rash [Unknown]
  - Off label use [Unknown]
